FAERS Safety Report 8645431 (Version 2)
Quarter: 2014Q3

REPORT INFORMATION
  Report Type: Spontaneous
  Country: US (occurrence: US)
  Receive Date: 20120702
  Receipt Date: 20140728
  Transmission Date: 20150326
  Serious: Yes (Hospitalization)
  Sender: FDA-Public Use
  Company Number: US-RANBAXY-2012US-57367

PATIENT
  Age: 50 Year
  Sex: Female

DRUGS (2)
  1. GABAPENTIN. [Suspect]
     Active Substance: GABAPENTIN
     Indication: PRODUCT USED FOR UNKNOWN INDICATION
     Dosage: UNK
     Route: 048
  2. GABAPENTIN. [Suspect]
     Active Substance: GABAPENTIN
     Dosage: UNK
     Route: 048

REACTIONS (6)
  - Dyskinesia [Unknown]
  - Encephalopathy [Unknown]
  - Drug abuse [Unknown]
  - Posterior reversible encephalopathy syndrome [Recovered/Resolved]
  - Depressed level of consciousness [Unknown]
  - Intentional overdose [Unknown]
